FAERS Safety Report 4949620-6 (Version None)
Quarter: 2006Q1

REPORT INFORMATION
  Report Type: 
  Country: None (occurrence: None)
  Receive Date: 20060316
  Receipt Date: 20060308
  Transmission Date: 20060701
  Serious: Yes (Death, Hospitalization)
  Sender: FDA-Public Use
  Company Number: HQWYE151323JUL03

PATIENT
  Age: 51 Year
  Sex: Female
  Weight: 76.3 kg

DRUGS (2)
  1. MYLOTARG [Suspect]
     Indication: ACUTE MYELOID LEUKAEMIA
     Dosage: 3.6 MG 1X PER 1 DAY, INTRAVENOUS
     Route: 042
     Dates: start: 20030717, end: 20030717
  2. MYLOTARG [Suspect]
     Indication: ACUTE MYELOID LEUKAEMIA
     Dosage: 3.6 MG 1X PER 1 DAY, INTRAVENOUS
     Route: 042
     Dates: start: 20030731, end: 20030731

REACTIONS (11)
  - ALANINE AMINOTRANSFERASE INCREASED [None]
  - ASPARTATE AMINOTRANSFERASE INCREASED [None]
  - BLAST CELL COUNT INCREASED [None]
  - CHILLS [None]
  - DISEASE PROGRESSION [None]
  - INFUSION RELATED REACTION [None]
  - PLATELET COUNT DECREASED [None]
  - PYREXIA [None]
  - RED BLOOD CELL COUNT DECREASED [None]
  - UPPER GASTROINTESTINAL HAEMORRHAGE [None]
  - WHITE BLOOD CELL COUNT DECREASED [None]
